FAERS Safety Report 6084376 (Version 8)
Quarter: 2013Q3

REPORT INFORMATION
  Report Type: Spontaneous
  Country: DE (occurrence: None)
  Receive Date: 20060703
  Receipt Date: 20130729
  Transmission Date: 20140515
  Serious: Yes (Hospitalization, Disabling)
  Sender: FDA-Public Use
  Company Number: 2006-01545

PATIENT
  Age: 38 Year
  Sex: 0

DRUGS (3)
  1. VELCADE [Suspect]
     Indication: PLASMA CELL MYELOMA
     Dosage: INTRAVENOUS
     Route: 042
  2. ADRIAMYCIN [Suspect]
     Indication: PLASMA CELL MYELOMA
  3. DEXAMETHASONE [Suspect]
     Indication: PLASMA CELL MYELOMA

REACTIONS (5)
  - Polyneuropathy [None]
  - Heparin-induced thrombocytopenia [None]
  - Peroneal nerve injury [None]
  - Medical device complication [None]
  - Hypercoagulation [None]
